FAERS Safety Report 12235825 (Version 1)
Quarter: 2016Q2

REPORT INFORMATION
  Report Type: Report from Study
  Country: RU (occurrence: RU)
  Receive Date: 20160404
  Receipt Date: 20160404
  Transmission Date: 20160815
  Serious: Yes (Death)
  Sender: FDA-Public Use
  Company Number: RU-ACTAVIS-2016-06715

PATIENT
  Age: 58 Year
  Sex: Female
  Weight: 92 kg

DRUGS (5)
  1. LETROZOLE (ATLLC) [Suspect]
     Active Substance: LETROZOLE
     Indication: BREAST CANCER
     Dosage: 2.5 MG, DAILY
     Route: 048
     Dates: start: 20140228, end: 20160223
  2. FERROUS SULFATE. [Concomitant]
     Active Substance: FERROUS SULFATE
     Indication: ANAEMIA
     Dosage: UNK
     Route: 065
     Dates: start: 20160115
  3. PREDUCTAL                          /00489601/ [Concomitant]
     Indication: ASTHENIA
     Dosage: UNK
     Route: 065
     Dates: start: 20140730
  4. ESSENTIALE                         /00722001/ [Concomitant]
     Indication: ALANINE AMINOTRANSFERASE INCREASED
  5. ESSENTIALE                         /00722001/ [Concomitant]
     Indication: ASPARTATE AMINOTRANSFERASE INCREASED
     Dosage: UNK
     Route: 065
     Dates: start: 20151211

REACTIONS (2)
  - Death [Fatal]
  - Respiratory tract infection [Unknown]

NARRATIVE: CASE EVENT DATE: 20160224
